FAERS Safety Report 15447691 (Version 4)
Quarter: 2019Q2

REPORT INFORMATION
  Report Type: Report from Study
  Country: US (occurrence: US)
  Receive Date: 20180928
  Receipt Date: 20190513
  Transmission Date: 20190711
  Serious: Yes (Other)
  Sender: FDA-Public Use
  Company Number: US-AMGEN-USASP2018109984

PATIENT
  Age: 69 Year
  Sex: Female
  Weight: 34.01 kg

DRUGS (4)
  1. LEVOTHYROXINE. [Concomitant]
     Active Substance: LEVOTHYROXINE
     Dosage: 25 MUG, UNK
  2. POTASSIUM [Concomitant]
     Active Substance: POTASSIUM
     Dosage: 99 MG, UNK
  3. VITAMIN B12 [Concomitant]
     Active Substance: CYANOCOBALAMIN
     Dosage: 1000 MUG, UNK
     Route: 030
  4. PROLIA [Suspect]
     Active Substance: DENOSUMAB
     Indication: OSTEOPOROSIS POSTMENOPAUSAL
     Dosage: 60 MG, Q6MO
     Route: 058
     Dates: start: 20180803

REACTIONS (23)
  - Hyponatraemia [Unknown]
  - Coeliac disease [Not Recovered/Not Resolved]
  - Nasal congestion [Unknown]
  - Decreased appetite [Unknown]
  - Alopecia [Not Recovered/Not Resolved]
  - Atrial fibrillation [Unknown]
  - Tachycardia [Unknown]
  - Cold sweat [Unknown]
  - Insomnia [Unknown]
  - Pruritus [Unknown]
  - Dizziness [Not Recovered/Not Resolved]
  - Oropharyngeal pain [Recovering/Resolving]
  - Drug intolerance [Unknown]
  - Palpitations [Unknown]
  - Weight decreased [Unknown]
  - Somatic symptom disorder [Unknown]
  - Oesophageal pain [Unknown]
  - Feeling abnormal [Unknown]
  - Irritable bowel syndrome [Unknown]
  - Influenza like illness [Recovered/Resolved]
  - Gastrooesophageal reflux disease [Unknown]
  - Throat irritation [Recovered/Resolved]
  - Eye swelling [Not Recovered/Not Resolved]

NARRATIVE: CASE EVENT DATE: 201808
